FAERS Safety Report 10174660 (Version 1)
Quarter: 2014Q2

REPORT INFORMATION
  Report Type: Spontaneous
  Country: US (occurrence: US)
  Receive Date: 20140515
  Receipt Date: 20140515
  Transmission Date: 20141212
  Serious: Yes (Other)
  Sender: FDA-Public Use
  Company Number: US-GLAXOSMITHKLINE-A1073252A

PATIENT
  Sex: Female

DRUGS (34)
  1. AVELOX [Suspect]
     Indication: PRODUCT USED FOR UNKNOWN INDICATION
     Route: 065
  2. BENADRYL [Suspect]
     Indication: PRODUCT USED FOR UNKNOWN INDICATION
     Route: 065
  3. COMPAZINE [Suspect]
     Indication: PRODUCT USED FOR UNKNOWN INDICATION
     Route: 065
  4. DICLOFENAC SODIUM [Suspect]
     Indication: PRODUCT USED FOR UNKNOWN INDICATION
     Route: 065
  5. ERYTHROMYCIN [Suspect]
     Indication: PRODUCT USED FOR UNKNOWN INDICATION
     Route: 065
  6. IMITREX [Suspect]
     Indication: PRODUCT USED FOR UNKNOWN INDICATION
     Route: 065
  7. KEPPRA [Suspect]
     Indication: PRODUCT USED FOR UNKNOWN INDICATION
     Route: 065
  8. LEVAQUIN [Suspect]
     Indication: PRODUCT USED FOR UNKNOWN INDICATION
     Route: 065
  9. MELOXICAM [Suspect]
     Indication: PRODUCT USED FOR UNKNOWN INDICATION
     Route: 065
  10. MINOCYCLINE HCL (WATSON LABORATORIES) [Suspect]
     Indication: PRODUCT USED FOR UNKNOWN INDICATION
     Route: 065
  11. MORPHINE [Suspect]
     Indication: PRODUCT USED FOR UNKNOWN INDICATION
     Route: 065
  12. REGLAN [Suspect]
     Indication: PRODUCT USED FOR UNKNOWN INDICATION
     Route: 065
  13. SINGULAIR [Suspect]
     Indication: PRODUCT USED FOR UNKNOWN INDICATION
     Dosage: 10MG UNKNOWN
     Route: 065
  14. SUDAFED [Suspect]
     Indication: PRODUCT USED FOR UNKNOWN INDICATION
     Route: 065
  15. SYNTHROID [Suspect]
     Indication: PRODUCT USED FOR UNKNOWN INDICATION
     Route: 065
  16. TETRACYCLINE [Suspect]
     Indication: PRODUCT USED FOR UNKNOWN INDICATION
     Route: 065
  17. ZOFRAN [Suspect]
     Indication: PRODUCT USED FOR UNKNOWN INDICATION
     Route: 065
  18. SKELAXIN [Concomitant]
  19. LEVOTHYROXINE SODIUM [Concomitant]
  20. PROMETHAZINE HCL [Concomitant]
  21. FISH OIL [Concomitant]
  22. MECLIZINE HCL [Concomitant]
  23. FEXOFENADINE HCL [Concomitant]
  24. ISOMETHEPTENE/APAP/DICHLORALPHENAZONE [Concomitant]
  25. VOLTAREN [Concomitant]
  26. IBUPROFEN [Concomitant]
  27. MULTIVITAMINS [Concomitant]
  28. XOPENEX [Concomitant]
  29. CHONDROITIN/GLUCOSAMINE [Concomitant]
  30. TUMS [Concomitant]
  31. MUCINEX [Concomitant]
  32. FLAX SEED OIL [Concomitant]
  33. NEXIUM [Concomitant]
  34. TRAMADOL HCL [Concomitant]

REACTIONS (11)
  - Convulsion [Unknown]
  - Drug hypersensitivity [Unknown]
  - Pruritus [Unknown]
  - Tachycardia [Unknown]
  - Nausea [Unknown]
  - Vomiting [Unknown]
  - Tendonitis [Unknown]
  - Abdominal discomfort [Unknown]
  - Cough [Unknown]
  - Rash [Unknown]
  - Headache [Unknown]
